FAERS Safety Report 5789058-5 (Version None)
Quarter: 2008Q2

REPORT INFORMATION
  Report Type: 
  Country: None (occurrence: None)
  Receive Date: 20080626
  Receipt Date: 20080623
  Transmission Date: 20081010
  Serious: Yes (Hospitalization)
  Sender: FDA-Public Use
  Company Number: B0526195A

PATIENT
  Age: 36 Year
  Sex: Male

DRUGS (9)
  1. AMOXICILLIN TRIHYDRATE [Suspect]
     Indication: INFECTION
     Dosage: 2G PER DAY
     Route: 048
     Dates: start: 20080328, end: 20080403
  2. NORSET [Suspect]
     Route: 048
     Dates: start: 20080125
  3. LEVOTHYROXINE SODIUM [Suspect]
     Indication: HYPOTHYROIDISM
     Dosage: 1TAB PER DAY
     Route: 048
     Dates: start: 20071224
  4. XATRAL LP [Suspect]
     Dosage: 1TAB PER DAY
     Route: 048
     Dates: start: 20080207, end: 20080401
  5. ATARAX [Suspect]
     Indication: ANXIETY
     Dosage: .5TAB PER DAY
     Route: 048
     Dates: start: 20080326, end: 20080401
  6. CLOZAPINE [Suspect]
     Indication: SCHIZOPHRENIA
     Dosage: 150MG PER DAY
     Route: 048
     Dates: start: 20080326
  7. RIVOTRIL [Suspect]
     Indication: EPILEPSY
     Dosage: 8MG PER DAY
     Route: 048
     Dates: start: 20080326
  8. ACETAMINOPHEN [Suspect]
     Indication: DRUG USE FOR UNKNOWN INDICATION
     Dosage: 4G PER DAY
     Route: 048
     Dates: start: 20080328
  9. LEPTICUR [Suspect]
     Dosage: 10MG TWICE PER DAY
     Route: 048
     Dates: start: 20080225

REACTIONS (1)
  - EOSINOPHILIA [None]
